FAERS Safety Report 5474620-X (Version None)
Quarter: 2007Q3

REPORT INFORMATION
  Report Type: 
  Country: None (occurrence: None)
  Receive Date: 20070928
  Receipt Date: 20070913
  Transmission Date: 20080115
  Serious: Yes (Hospitalization)
  Sender: FDA-Public Use
  Company Number: KADN20070083

PATIENT
  Age: 54 Year
  Sex: Female

DRUGS (2)
  1. KADIAN [Suspect]
     Indication: COMPLEX REGIONAL PAIN SYNDROME
     Dosage: 1 CAP Q12H OR Q6H,
     Dates: start: 20070628, end: 20070704
  2. ROPINIROLE HCL [Concomitant]

REACTIONS (8)
  - COMA [None]
  - DIZZINESS [None]
  - DYSKINESIA [None]
  - NAUSEA [None]
  - OVERDOSE [None]
  - PYREXIA [None]
  - SYNCOPE [None]
  - VOMITING [None]
